FAERS Safety Report 8849946 (Version 2)
Quarter: 2012Q4

REPORT INFORMATION
  Report Type: Report from Study
  Country: US (occurrence: US)
  Receive Date: 20121019
  Receipt Date: 20121227
  Transmission Date: 20130627
  Serious: Yes (Death)
  Sender: FDA-Public Use
  Company Number: US-ABBOTT-12P-163-0996362-00

PATIENT
  Sex: Male
  Weight: 88.98 kg

DRUGS (7)
  1. HUMIRA PEN [Suspect]
     Indication: PSORIASIS
     Route: 058
     Dates: start: 201007, end: 201209
  2. LASIX [Concomitant]
     Indication: PRODUCT USED FOR UNKNOWN INDICATION
  3. NEURONTIN [Concomitant]
     Indication: PRODUCT USED FOR UNKNOWN INDICATION
  4. COMBIVENT [Concomitant]
     Indication: PRODUCT USED FOR UNKNOWN INDICATION
  5. PREVACID [Concomitant]
     Indication: PRODUCT USED FOR UNKNOWN INDICATION
     Dosage: 20 mg daily
  6. UNKNOWN MEDICATION [Concomitant]
     Indication: PRODUCT USED FOR UNKNOWN INDICATION
     Route: 048
  7. FISH OIL [Concomitant]
     Indication: PRODUCT USED FOR UNKNOWN INDICATION

REACTIONS (6)
  - Acute hepatic failure [Fatal]
  - Alcoholic liver disease [Fatal]
  - Non-small cell lung cancer [Fatal]
  - Coronary artery disease [Fatal]
  - Pneumonia [Unknown]
  - Weight decreased [Unknown]
